FAERS Safety Report 7668726-4 (Version None)
Quarter: 2011Q3

REPORT INFORMATION
  Report Type: 
  Country: None (occurrence: None)
  Receive Date: 20110808
  Receipt Date: 20110726
  Transmission Date: 20111222
  Serious: Yes (Hospitalization)
  Sender: FDA-Public Use
  Company Number: FR-SANOFI-AVENTIS-2011SA047594

PATIENT
  Age: 87 Year
  Sex: Female

DRUGS (11)
  1. TENORETIC 100 [Suspect]
     Route: 048
     Dates: end: 20110630
  2. EXELON [Concomitant]
     Route: 048
  3. NICARDIPINE HCL [Concomitant]
     Route: 048
  4. PANTOPRAZOLE [Concomitant]
     Route: 048
  5. EUPRESSYL [Suspect]
     Route: 048
     Dates: end: 20110630
  6. ACETAMINOPHEN [Concomitant]
     Route: 048
  7. ZOLOFT [Suspect]
     Route: 048
     Dates: end: 20110630
  8. ZOLPIDEM [Concomitant]
     Route: 048
  9. IRBESARTAN [Concomitant]
     Route: 048
  10. GLYBURIDE [Suspect]
     Indication: TYPE 2 DIABETES MELLITUS
     Route: 048
     Dates: end: 20110630
  11. SINEMET [Concomitant]
     Route: 048

REACTIONS (3)
  - BRADYCARDIA [None]
  - HYPOGLYCAEMIA [None]
  - HYPONATRAEMIA [None]
